FAERS Safety Report 17580599 (Version 2)
Quarter: 2022Q3

REPORT INFORMATION
  Report Type: Spontaneous
  Country: CA (occurrence: CA)
  Receive Date: 20200325
  Receipt Date: 20220917
  Transmission Date: 20221027
  Serious: Yes (Other)
  Sender: FDA-Public Use
  Company Number: CA-NOVARTISPH-NVSC2020CA083233

PATIENT

DRUGS (13)
  1. HYDROMORPHONE HYDROCHLORIDE [Suspect]
     Active Substance: HYDROMORPHONE HYDROCHLORIDE
     Indication: Foetal exposure during pregnancy
     Dosage: MATERNAL DOSE: 8 MG, TID
     Route: 064
  2. HYDROMORPHONE HYDROCHLORIDE [Suspect]
     Active Substance: HYDROMORPHONE HYDROCHLORIDE
     Dosage: MATERNAL DOSE: 8 MG, PRN (AS REQUIRED)
     Route: 064
  3. FENTANYL [Suspect]
     Active Substance: FENTANYL
     Indication: Foetal exposure during pregnancy
     Dosage: MATERNAL DOSE: 125 MG, CYCLICAL
     Route: 064
  4. FENTANYL [Suspect]
     Active Substance: FENTANYL
     Dosage: MATERNAL DOSE: 100 UG, CYCLICAL
     Route: 064
  5. LORAZEPAM [Suspect]
     Active Substance: LORAZEPAM
     Indication: Foetal exposure during pregnancy
     Dosage: MATERNAL DOSE: 0.5 MG, QD
     Route: 064
  6. ONDANSETRON [Suspect]
     Active Substance: ONDANSETRON
     Indication: Foetal exposure during pregnancy
     Dosage: UNK
     Route: 064
  7. PANTOPRAZOLE SODIUM [Suspect]
     Active Substance: PANTOPRAZOLE SODIUM
     Indication: Foetal exposure during pregnancy
     Dosage: UNK
     Route: 064
  8. ENOXAPARIN [Suspect]
     Active Substance: ENOXAPARIN
     Indication: Foetal exposure during pregnancy
     Dosage: UNK
     Route: 064
  9. AMITRIPTYLINE [Suspect]
     Active Substance: AMITRIPTYLINE
     Indication: Foetal exposure during pregnancy
     Dosage: MATERNAL DOSE: 25 MG, QD
     Route: 064
  10. GRAVOL [Suspect]
     Active Substance: DIMENHYDRINATE
     Indication: Foetal exposure during pregnancy
     Dosage: UNK
     Route: 064
  11. PROCHLORPERAZINE [Suspect]
     Active Substance: PROCHLORPERAZINE
     Indication: Foetal exposure during pregnancy
     Dosage: UNK
     Route: 064
  12. HYDROMORPHONE [Suspect]
     Active Substance: HYDROMORPHONE
     Indication: Foetal exposure during pregnancy
     Dosage: MATERNAL DOSE: 24 MG, TID
     Route: 064
  13. PROCHLORPERAZINE MALEATE [Suspect]
     Active Substance: PROCHLORPERAZINE MALEATE
     Indication: Foetal exposure during pregnancy
     Dosage: UNK
     Route: 064

REACTIONS (2)
  - Premature baby [Unknown]
  - Foetal exposure during pregnancy [Unknown]
